FAERS Safety Report 5684997-8 (Version None)
Quarter: 2008Q1

REPORT INFORMATION
  Report Type: 
  Country: None (occurrence: None)
  Receive Date: 20080328
  Receipt Date: 19960115
  Transmission Date: 20080703
  Serious: Yes (Death, Other)
  Sender: FDA-Public Use
  Company Number: AU-ROCHE-73390

PATIENT
  Age: 47 Year
  Sex: Male
  Weight: 52 kg

DRUGS (4)
  1. ZALCITABINE [Suspect]
     Indication: HIV INFECTION
     Route: 065
     Dates: start: 19940810, end: 19941028
  2. BACTRIM [Suspect]
     Indication: DRUG USE FOR UNKNOWN INDICATION
     Route: 065
     Dates: start: 19940810, end: 19941028
  3. ACYCLOVIR [Suspect]
     Indication: HERPES SIMPLEX
     Route: 048
     Dates: start: 19940810, end: 19941028
  4. FLUCONAZOLE [Suspect]
     Route: 065
     Dates: start: 19940810, end: 19941028

REACTIONS (2)
  - ABDOMINAL PAIN [None]
  - DEATH [None]
